FAERS Safety Report 15387236 (Version 3)
Quarter: 2018Q4

REPORT INFORMATION
  Report Type: Spontaneous
  Country: US (occurrence: US)
  Receive Date: 20180914
  Receipt Date: 20181022
  Transmission Date: 20190204
  Serious: No
  Sender: FDA-Public Use
  Company Number: US-SA-2018SA242683

PATIENT
  Sex: Female

DRUGS (1)
  1. ICY HOT ADVANCED RELIEF (MENTHOL) [Suspect]
     Active Substance: MENTHOL
     Indication: PAIN
     Dosage: UNK
     Route: 061
     Dates: start: 201804

REACTIONS (5)
  - Rash [Unknown]
  - Scar [Unknown]
  - Skin discolouration [Unknown]
  - Scab [Unknown]
  - Application site pain [Unknown]
